FAERS Safety Report 12582595 (Version 3)
Quarter: 2016Q3

REPORT INFORMATION
  Report Type: Report from Study
  Country: US (occurrence: US)
  Receive Date: 20160722
  Receipt Date: 20160817
  Transmission Date: 20161109
  Serious: Yes (Other)
  Sender: FDA-Public Use
  Company Number: US-JNJFOC-20160625408

PATIENT
  Age: 72 Year
  Sex: Female
  Weight: 64 kg

DRUGS (11)
  1. IMBRUVICA [Suspect]
     Active Substance: IBRUTINIB
     Indication: CHRONIC LYMPHOCYTIC LEUKAEMIA
     Route: 048
     Dates: start: 20160610
  2. SIMVASTATIN. [Concomitant]
     Active Substance: SIMVASTATIN
  3. DYAZIDE [Concomitant]
     Active Substance: HYDROCHLOROTHIAZIDE\TRIAMTERENE
  4. ATENOLOL. [Concomitant]
     Active Substance: ATENOLOL
  5. ACYCLOVIR. [Concomitant]
     Active Substance: ACYCLOVIR
  6. CALTRATE [Concomitant]
     Active Substance: CALCIUM CARBONATE
  7. IMBRUVICA [Suspect]
     Active Substance: IBRUTINIB
     Indication: BREAST CANCER
     Route: 048
     Dates: start: 20160610
  8. CENTRUM [Concomitant]
     Active Substance: VITAMINS
  9. RESTORIL [Concomitant]
     Active Substance: TEMAZEPAM
  10. EXEMESTANE. [Concomitant]
     Active Substance: EXEMESTANE
  11. PROLIA [Concomitant]
     Active Substance: DENOSUMAB

REACTIONS (5)
  - Tongue discomfort [Recovered/Resolved]
  - Diarrhoea [Recovering/Resolving]
  - Gingival bleeding [Recovered/Resolved]
  - Gastrointestinal haemorrhage [Recovered/Resolved]
  - Stomatitis [Recovered/Resolved]

NARRATIVE: CASE EVENT DATE: 2016
